FAERS Safety Report 9450566 (Version 1)
Quarter: 2013Q3

REPORT INFORMATION
  Report Type: Spontaneous
  Country: US (occurrence: US)
  Receive Date: 20130809
  Receipt Date: 20130809
  Transmission Date: 20140515
  Serious: Yes (Death, Other)
  Sender: FDA-Public Use
  Company Number: US-GLAXOSMITHKLINE-A1037043A

PATIENT
  Age: 61 Year
  Sex: Male
  Weight: 45.5 kg

DRUGS (1)
  1. AVANDIA [Suspect]
     Indication: TYPE 2 DIABETES MELLITUS
     Dosage: 4MG PER DAY
     Route: 048
     Dates: start: 200106

REACTIONS (4)
  - Death [Fatal]
  - Angina pectoris [Unknown]
  - Coronary artery disease [Unknown]
  - Angina pectoris [Unknown]
